FAERS Safety Report 18664562 (Version 6)
Quarter: 2022Q3

REPORT INFORMATION
  Report Type: Spontaneous
  Country: GB (occurrence: GB)
  Receive Date: 20201225
  Receipt Date: 20220915
  Transmission Date: 20221027
  Serious: Yes (Other)
  Sender: FDA-Public Use
  Company Number: GB-BIOVITRUM-2020GB7884

PATIENT
  Age: 30 Year
  Sex: Male

DRUGS (8)
  1. ORFADIN [Suspect]
     Active Substance: NITISINONE
     Indication: Alkaptonuria
     Dosage: 2 MG
     Dates: start: 2013
  2. ORFADIN [Suspect]
     Active Substance: NITISINONE
     Dosage: 2 MG
     Dates: start: 2014
  3. ORFADIN [Suspect]
     Active Substance: NITISINONE
     Dosage: 2 MG
     Dates: start: 2015
  4. ORFADIN [Suspect]
     Active Substance: NITISINONE
     Dosage: 2 MG
     Dates: start: 2016
  5. ORFADIN [Suspect]
     Active Substance: NITISINONE
     Dosage: 2 MG
     Dates: start: 2017
  6. ORFADIN [Suspect]
     Active Substance: NITISINONE
     Dosage: 2 MG
     Dates: start: 2018
  7. ORFADIN [Suspect]
     Active Substance: NITISINONE
     Dosage: 2 MG
     Dates: start: 2019
  8. VITAMIN D [Concomitant]
     Active Substance: VITAMIN D NOS
     Dates: start: 2019

REACTIONS (3)
  - Lenticular opacities [Not Recovered/Not Resolved]
  - Cataract [Not Recovered/Not Resolved]
  - Amino acid level increased [Not Recovered/Not Resolved]

NARRATIVE: CASE EVENT DATE: 20140101
